FAERS Safety Report 4522570-5 (Version None)
Quarter: 2004Q4

REPORT INFORMATION
  Report Type: 
  Country: None (occurrence: None)
  Receive Date: 20041209
  Receipt Date: 20040819
  Transmission Date: 20050328
  Serious: Yes (Hospitalization, Other)
  Sender: FDA-Public Use
  Company Number: PHHO2004CA11773

PATIENT
  Age: 53 Year
  Sex: Male

DRUGS (9)
  1. CLOZARIL [Suspect]
     Dosage: UNK, UNK
     Dates: end: 20040818
  2. CLOZARIL [Suspect]
     Dates: end: 20040701
  3. ZOLOFT [Concomitant]
  4. LIPITOR [Concomitant]
  5. METOPROLOL [Concomitant]
  6. COLACE [Concomitant]
  7. PLAVIX [Concomitant]
  8. VALPROIC ACID [Concomitant]
  9. LOXAPINE HCL [Concomitant]

REACTIONS (3)
  - ISCHAEMIC CARDIOMYOPATHY [None]
  - LEUKOPENIA [None]
  - MYOCARDIAL INFARCTION [None]
